FAERS Safety Report 20205067 (Version 2)
Quarter: 2022Q1

REPORT INFORMATION
  Report Type: Report from Study
  Country: AM (occurrence: AM)
  Receive Date: 20211220
  Receipt Date: 20220119
  Transmission Date: 20220423
  Serious: Yes (Death, Hospitalization)
  Sender: FDA-Public Use
  Company Number: AM-BAUSCH-BL-2021-041063

PATIENT
  Age: 60 Year
  Sex: Female

DRUGS (11)
  1. DEXAMETHASONE [Suspect]
     Active Substance: DEXAMETHASONE
     Indication: COVID-19
     Dosage: CUMULATIVE DOSE WAS 116MG (TREATMENT COURSE AT HOME)
     Route: 042
     Dates: start: 2020, end: 2020
  2. DEXAMETHASONE [Suspect]
     Active Substance: DEXAMETHASONE
     Indication: Interstitial lung disease
     Route: 065
     Dates: start: 2020
  3. DEXAMETHASONE [Suspect]
     Active Substance: DEXAMETHASONE
     Indication: Organising pneumonia
  4. CEFTRIAXONE [Suspect]
     Active Substance: CEFTRIAXONE
     Indication: COVID-19
     Route: 042
     Dates: start: 2020, end: 2020
  5. CYCLOPHOSPHAMIDE\FLUDARABINE [Suspect]
     Active Substance: CYCLOPHOSPHAMIDE\FLUDARABINE
     Indication: B-cell small lymphocytic lymphoma
     Dosage: SUCCESSFULLY COMPLETED SLL TREATMENT WITH 6 COURSES
     Route: 065
  6. RITUXIMAB [Suspect]
     Active Substance: RITUXIMAB
     Indication: B-cell small lymphocytic lymphoma
     Dosage: SUCCESSFULLY COMPLETED SLL TREATMENT WITH 6 COURSES
     Route: 065
  7. OXYGEN [Concomitant]
     Active Substance: OXYGEN
     Indication: Organising pneumonia
     Route: 042
     Dates: start: 2020
  8. OXYGEN [Concomitant]
     Active Substance: OXYGEN
     Indication: Interstitial lung disease
  9. HUMAN RED BLOOD CELL [Concomitant]
     Active Substance: HUMAN RED BLOOD CELL
     Indication: Transfusion
     Dosage: TWICE
     Dates: start: 2020
  10. PLATELETS [Concomitant]
     Active Substance: HUMAN PLATELET, ALLOGENIC
     Indication: Transfusion
     Dosage: ONCE
     Dates: start: 2020
  11. LEVOFLOXACIN [Concomitant]
     Active Substance: LEVOFLOXACIN
     Indication: Antibiotic prophylaxis
     Dates: start: 2020

REACTIONS (4)
  - Acute respiratory distress syndrome [Fatal]
  - Pneumonia [Unknown]
  - Streptococcus test positive [Unknown]
  - Candida test positive [Unknown]

NARRATIVE: CASE EVENT DATE: 20200101
